FAERS Safety Report 8256908-2 (Version None)
Quarter: 2012Q2

REPORT INFORMATION
  Report Type: 
  Country: None (occurrence: None)
  Receive Date: 20120403
  Receipt Date: 20120328
  Transmission Date: 20120825
  Serious: Yes (Hospitalization)
  Sender: FDA-Public Use
  Company Number: DE-ABBOTT-12P-062-0919402-00

PATIENT
  Sex: Male
  Weight: 88 kg

DRUGS (1)
  1. ZEMPLAR [Suspect]
     Indication: SECONDARY HYPOTHYROIDISM

REACTIONS (3)
  - CHOLANGITIS [None]
  - ANAEMIA [None]
  - BILE DUCT STONE [None]
